FAERS Safety Report 18701343 (Version 1)
Quarter: 2021Q1

REPORT INFORMATION
  Report Type: Spontaneous
  Country: US (occurrence: US)
  Receive Date: 20210105
  Receipt Date: 20210105
  Transmission Date: 20210419
  Serious: No
  Sender: FDA-Public Use
  Company Number: US-TAKEDA-2021TUS000019

PATIENT
  Sex: Male
  Weight: 90.7 kg

DRUGS (15)
  1. DIPHENHYDRAMINE. [Concomitant]
     Active Substance: DIPHENHYDRAMINE
  2. EPINEPHRINE. [Concomitant]
     Active Substance: EPINEPHRINE
  3. SYNTHROID [Concomitant]
     Active Substance: LEVOTHYROXINE SODIUM
  4. TAMSULOSIN [Concomitant]
     Active Substance: TAMSULOSIN
  5. GAMMAGARD LIQUID [Suspect]
     Active Substance: HUMAN IMMUNOGLOBULIN G
     Indication: STIFF PERSON SYNDROME
     Dosage: 150 GRAM, Q3WEEKS
     Route: 042
     Dates: start: 20120420
  6. LISINOPRIL. [Concomitant]
     Active Substance: LISINOPRIL
  7. GLIPIZIDE. [Concomitant]
     Active Substance: GLIPIZIDE
  8. FLUAD NOS [Concomitant]
     Active Substance: INFLUENZA VIRUS VACCINE
  9. ACETAMINOPHEN. [Concomitant]
     Active Substance: ACETAMINOPHEN
  10. ROSUVASTATIN. [Concomitant]
     Active Substance: ROSUVASTATIN
  11. SODIUM CHLORIDE. [Concomitant]
     Active Substance: SODIUM CHLORIDE
  12. HYDROCHLOROTHIAZIDE. [Concomitant]
     Active Substance: HYDROCHLOROTHIAZIDE
  13. METFORMIN [Concomitant]
     Active Substance: METFORMIN HYDROCHLORIDE
  14. LIDOCAINE. [Concomitant]
     Active Substance: LIDOCAINE
  15. JARDIANCE [Concomitant]
     Active Substance: EMPAGLIFLOZIN

REACTIONS (2)
  - Pharyngitis [Unknown]
  - Cough [Unknown]
